FAERS Safety Report 4781183-0 (Version None)
Quarter: 2005Q3

REPORT INFORMATION
  Report Type: 
  Country: None (occurrence: None)
  Receive Date: 20050928
  Receipt Date: 20050922
  Transmission Date: 20060218
  Serious: Yes (Other)
  Sender: FDA-Public Use
  Company Number: 2005UW14245

PATIENT
  Age: 41 Year
  Sex: Male

DRUGS (2)
  1. SEROQUEL [Suspect]
     Route: 048
  2. IMOVANE [Interacting]
     Route: 048

REACTIONS (2)
  - DRUG INTERACTION [None]
  - FACIAL PALSY [None]
